FAERS Safety Report 15832524 (Version 1)
Quarter: 2018Q4

REPORT INFORMATION
  Report Type: Spontaneous
  Country: US (occurrence: US)
  Receive Date: 20181219
  Receipt Date: 20181219
  Transmission Date: 20190205
  Serious: No
  Sender: FDA-Public Use
  Company Number: None

PATIENT
  Sex: Female

DRUGS (1)
  1. TALTZ [Suspect]
     Active Substance: IXEKIZUMAB
     Indication: PSORIASIS
     Dosage: ?          OTHER DOSE:160MG/80MG;OTHER FREQUENCY:DAY 1/EVERY 2 WEEK;?
     Route: 058
     Dates: start: 20181128

REACTIONS (3)
  - Injection site erythema [None]
  - Injection site hypersensitivity [None]
  - Injection site swelling [None]
